FAERS Safety Report 23971215 (Version 1)
Quarter: 2024Q2

REPORT INFORMATION
  Report Type: Report from Study
  Country: AU (occurrence: AU)
  Receive Date: 20240613
  Receipt Date: 20240613
  Transmission Date: 20240716
  Serious: Yes (Other)
  Sender: FDA-Public Use
  Company Number: AU-002147023-NVSC2023AU148315

PATIENT
  Sex: Female

DRUGS (1)
  1. KESIMPTA [Suspect]
     Active Substance: OFATUMUMAB
     Indication: Relapsing-remitting multiple sclerosis
     Dosage: 20 MG, QMO
     Route: 058
     Dates: start: 20230223

REACTIONS (11)
  - Lower respiratory tract infection [Unknown]
  - Anxiety [Unknown]
  - Vomiting [Unknown]
  - Mood altered [Unknown]
  - Panic disorder [Unknown]
  - Emotional distress [Unknown]
  - Product dose omission issue [Unknown]
  - Wrong technique in product usage process [Unknown]
  - Product leakage [Unknown]
  - Malaise [Unknown]
  - Urinary tract infection [Unknown]
